FAERS Safety Report 8771270 (Version 1)
Quarter: 2012Q4

REPORT INFORMATION
  Report Type: 
  Country: US (occurrence: US)
  Receive Date: 20120905
  Receipt Date: 20120905
  Transmission Date: 20130627
  Serious: Yes (Hospitalization, Other)
  Sender: FDA-Public Use
  Company Number: US-BAXTER-2012BAX015754

PATIENT
  Age: 11 Year
  Sex: Male

DRUGS (2)
  1. DIANEAL PD2 [Suspect]
     Indication: PERITONEAL DIALYSIS
     Route: 033
  2. COUMADIN [Concomitant]
     Indication: SUPERIOR VENA CAVA SYNDROME
     Route: 048

REACTIONS (3)
  - Urinary tract infection [Recovered/Resolved]
  - Catheter site haemorrhage [Recovering/Resolving]
  - Anticoagulation drug level above therapeutic [Unknown]
